FAERS Safety Report 14231269 (Version 1)
Quarter: 2017Q4

REPORT INFORMATION
  Report Type: Spontaneous
  Country: US (occurrence: US)
  Receive Date: 20171128
  Receipt Date: 20171128
  Transmission Date: 20180321
  Serious: No
  Sender: FDA-Public Use
  Company Number: US-JNJFOC-20171016734

PATIENT
  Age: 28 Year
  Sex: Female
  Weight: 54.43 kg

DRUGS (5)
  1. WOMENS ROGAINE UNSCENTED [Suspect]
     Active Substance: MINOXIDIL
     Indication: DIFFUSE ALOPECIA
     Dosage: 1/2 CUPFUL
     Route: 061
     Dates: start: 20171012
  2. BEYAZ [Concomitant]
     Active Substance: DROSPIRENONE\ETHINYL ESTRADIOL\LEVOMEFOLATE CALCIUM
     Indication: CONTRACEPTION
     Route: 065
  3. WOMENS ROGAINE UNSCENTED [Suspect]
     Active Substance: MINOXIDIL
     Indication: DIFFUSE ALOPECIA
     Route: 061
  4. ZYRTEC [Concomitant]
     Active Substance: CETIRIZINE HYDROCHLORIDE
     Indication: SEASONAL ALLERGY
     Dosage: 1-2 YEARS
     Route: 065
  5. SINGULAIR [Concomitant]
     Active Substance: MONTELUKAST SODIUM
     Indication: SEASONAL ALLERGY
     Dosage: 4 YEARS
     Route: 065

REACTIONS (3)
  - Alopecia [Recovered/Resolved]
  - Off label use [Recovered/Resolved]
  - Product use in unapproved indication [Recovered/Resolved]

NARRATIVE: CASE EVENT DATE: 20171012
